FAERS Safety Report 7966992-9 (Version None)
Quarter: 2011Q4

REPORT INFORMATION
  Report Type: 
  Country: None (occurrence: None)
  Receive Date: 20111209
  Receipt Date: 20111129
  Transmission Date: 20120403
  Serious: Yes (Hospitalization)
  Sender: FDA-Public Use
  Company Number: FR-JNJFOC-20110706863

PATIENT
  Age: 56 Year
  Sex: Male

DRUGS (18)
  1. REMICADE [Suspect]
     Indication: ANKYLOSING SPONDYLITIS
     Route: 042
     Dates: start: 20100510
  2. REMICADE [Suspect]
     Route: 042
     Dates: start: 20110316
  3. LEPTICUR [Concomitant]
     Indication: PRODUCT USED FOR UNKNOWN INDICATION
  4. ACETAMINOPHEN [Concomitant]
     Indication: PRODUCT USED FOR UNKNOWN INDICATION
  5. FORADIL [Concomitant]
     Indication: RESPIRATORY DISORDER
  6. ALBUTEROL SULFATE AUTOHALER [Concomitant]
     Indication: RESPIRATORY DISORDER
  7. IMOVANE [Concomitant]
     Indication: PRODUCT USED FOR UNKNOWN INDICATION
  8. SPIRIVA [Concomitant]
     Indication: RESPIRATORY DISORDER
  9. REMICADE [Suspect]
     Route: 042
     Dates: start: 20110330
  10. REMICADE [Suspect]
     Route: 042
     Dates: start: 20110622
  11. LYRICA [Concomitant]
     Indication: PRODUCT USED FOR UNKNOWN INDICATION
  12. ATACAND [Concomitant]
     Indication: PRODUCT USED FOR UNKNOWN INDICATION
  13. REMICADE [Suspect]
     Route: 042
     Dates: start: 20100716
  14. SCOPODERM [Concomitant]
     Indication: RESPIRATORY DISORDER
  15. REMICADE [Suspect]
     Route: 042
     Dates: start: 20100521
  16. REMICADE [Suspect]
     Route: 042
     Dates: start: 20110427
  17. HALDOL [Concomitant]
     Indication: PRODUCT USED FOR UNKNOWN INDICATION
  18. CLOZAPINE [Concomitant]
     Indication: PRODUCT USED FOR UNKNOWN INDICATION

REACTIONS (2)
  - MYCOBACTERIUM AVIUM COMPLEX INFECTION [None]
  - CANDIDIASIS [None]
